FAERS Safety Report 23715491 (Version 2)
Quarter: 2024Q3

REPORT INFORMATION
  Report Type: Report from Study
  Country: US (occurrence: US)
  Receive Date: 20240407
  Receipt Date: 20240912
  Transmission Date: 20241017
  Serious: No
  Sender: ABBVIE
  Company Number: US-ABBVIE-5706867

PATIENT
  Age: 65 Year
  Sex: Female

DRUGS (2)
  1. SKYRIZI [Suspect]
     Active Substance: RISANKIZUMAB-RZAA
     Indication: Psoriasis
     Route: 058
     Dates: start: 20230516
  2. METHOTREXATE [Suspect]
     Active Substance: METHOTREXATE
     Indication: Product used for unknown indication
     Route: 065

REACTIONS (7)
  - Skin ulcer [Unknown]
  - Tooth disorder [Unknown]
  - Urinary tract infection [Unknown]
  - Psoriasis [Unknown]
  - Radiation induced fatigue [Unknown]
  - Depression [Unknown]
  - Dysphonia [Unknown]

NARRATIVE: CASE EVENT DATE: 20231101
